FAERS Safety Report 6468662-5 (Version None)
Quarter: 2009Q4

REPORT INFORMATION
  Report Type: 
  Country: None (occurrence: None)
  Receive Date: 20091119
  Receipt Date: 20090725
  Transmission Date: 20100525
  Serious: No
  Sender: FDA-Public Use
  Company Number: WAES 0907USA04883

PATIENT
  Age: 82 Year
  Sex: Male

DRUGS (10)
  1. JANUVIA [Suspect]
     Indication: DIABETES MELLITUS
     Dosage: 100MG/DAILY/PO
     Route: 048
     Dates: start: 20090528
  2. LEVOXYL [Concomitant]
  3. LIPITOR [Concomitant]
  4. PRILOSEC [Concomitant]
  5. TRICOR [Concomitant]
  6. ENALAPRIL MALEATE [Concomitant]
  7. GLIMEPIRIDE [Concomitant]
  8. HYDROCORTISONE [Concomitant]
  9. IMIPRAMINE HYDROCHOLORIDE [Concomitant]
  10. OXYBUTYNIN CHLORIDE [Concomitant]

REACTIONS (1)
  - DIZZINESS [None]
